FAERS Safety Report 8837693 (Version 3)
Quarter: 2013Q4

REPORT INFORMATION
  Report Type: Report from Study
  Country: US (occurrence: US)
  Receive Date: 20121012
  Receipt Date: 20131005
  Transmission Date: 20140711
  Serious: Yes (Death, Other)
  Sender: FDA-Public Use
  Company Number: US-ALEXION-A201201907

PATIENT
  Sex: Male
  Weight: 55 kg

DRUGS (4)
  1. SOLIRIS [Suspect]
     Indication: HAEMOLYTIC URAEMIC SYNDROME
     Dosage: 900 MG, Q2W
     Route: 042
  2. TACROLIMUS [Concomitant]
  3. VALCYTE [Concomitant]
     Indication: CYTOMEGALOVIRUS VIRAEMIA
  4. FOSCAVIR [Concomitant]
     Indication: CYTOMEGALOVIRUS VIRAEMIA

REACTIONS (7)
  - Respiratory failure [Fatal]
  - Hypoxia [Fatal]
  - Encephalopathy [Unknown]
  - Myocardial ischaemia [Unknown]
  - Bacteraemia [Unknown]
  - Hypercapnia [Unknown]
  - Bacteroides test positive [Unknown]
